FAERS Safety Report 6243972-5 (Version None)
Quarter: 2009Q2

REPORT INFORMATION
  Report Type: 
  Country: None (occurrence: None)
  Receive Date: 20090623
  Receipt Date: 20090608
  Transmission Date: 20091009
  Serious: Yes (Other)
  Sender: FDA-Public Use
  Company Number: SPV1-2009-01181

PATIENT
  Sex: Male

DRUGS (1)
  1. CARBATROL [Suspect]
     Dates: start: 20080101

REACTIONS (3)
  - CONVULSION [None]
  - DRUG DOSE OMISSION [None]
  - ROAD TRAFFIC ACCIDENT [None]
